FAERS Safety Report 6944015-8 (Version None)
Quarter: 2010Q3

REPORT INFORMATION
  Report Type: 
  Country: None (occurrence: None)
  Receive Date: 20100827
  Receipt Date: 20100818
  Transmission Date: 20110219
  Serious: Yes (Death)
  Sender: FDA-Public Use
  Company Number: ES-BIOGENIDEC-2010BI023829

PATIENT
  Age: 45 Year
  Sex: Male
  Weight: 56 kg

DRUGS (12)
  1. TYSABRI [Suspect]
     Indication: MULTIPLE SCLEROSIS
     Route: 042
     Dates: start: 20080311, end: 20100615
  2. LANTUS [Concomitant]
     Indication: DIABETES MELLITUS
     Dates: start: 20090715
  3. HLG INSULIN [Concomitant]
     Indication: DIABETES MELLITUS
     Dates: start: 20090715
  4. IDEOS [Concomitant]
     Indication: OSTEOPOROSIS
     Dates: start: 20070101
  5. GABAPENTIN [Concomitant]
     Indication: PAIN
     Dates: start: 20070101
  6. PREGABALIN [Concomitant]
     Indication: PAIN
     Dates: start: 20090101
  7. XERISTAR [Concomitant]
     Indication: DEPRESSION
     Dates: start: 20090101
  8. CARBAMAZEPINE [Concomitant]
     Indication: PAIN
     Dates: start: 20070101
  9. OMEPRAZOLE [Concomitant]
     Indication: PROPHYLAXIS
     Dates: start: 20070101
  10. ALAPRIL [Concomitant]
  11. MULTI-VITAMINS [Concomitant]
  12. NSAIDS [Concomitant]

REACTIONS (1)
  - COMPLETED SUICIDE [None]
